FAERS Safety Report 4541111-X (Version None)
Quarter: 2004Q4

REPORT INFORMATION
  Report Type: 
  Country: None (occurrence: None)
  Receive Date: 20041228
  Receipt Date: 20041215
  Transmission Date: 20050328
  Serious: Yes (Disabling)
  Sender: FDA-Public Use
  Company Number: 2004-BP-14195YA (0)

PATIENT
  Age: 60 Year
  Sex: Male

DRUGS (1)
  1. OMNIC CAPSULES (TAMSULOSIN) (NR) (TAMSULOSIN HYDROCHLORIDE) [Suspect]
     Indication: BENIGN PROSTATIC HYPERPLASIA
     Dosage: 0.4 MG (0.4 MG) PO
     Route: 048

REACTIONS (1)
  - VISUAL DISTURBANCE [None]
